FAERS Safety Report 8155681-6 (Version None)
Quarter: 2012Q1

REPORT INFORMATION
  Report Type: 
  Country: None (occurrence: None)
  Receive Date: 20120222
  Receipt Date: 20120216
  Transmission Date: 20120608
  Serious: No
  Sender: FDA-Public Use
  Company Number: US-PFIZER INC-2012031862

PATIENT
  Sex: Female
  Weight: 61.224 kg

DRUGS (3)
  1. GABAPENTIN [Suspect]
     Dosage: 100 MG, 2X/DAY
     Dates: start: 20091201, end: 20111101
  2. LYRICA [Suspect]
     Indication: COMPLEX REGIONAL PAIN SYNDROME
     Dosage: 50 MG, 3X/DAY
     Route: 048
     Dates: start: 20111101
  3. GABAPENTIN [Suspect]
     Indication: COMPLEX REGIONAL PAIN SYNDROME
     Dosage: 100 MG, 3X/DAY
     Route: 048
     Dates: start: 20070301, end: 20091201

REACTIONS (1)
  - WHITE BLOOD CELL COUNT DECREASED [None]
